FAERS Safety Report 20873946 (Version 2)
Quarter: 2022Q2

REPORT INFORMATION
  Report Type: Spontaneous
  Country: CA (occurrence: CA)
  Receive Date: 20220525
  Receipt Date: 20220622
  Transmission Date: 20220721
  Serious: Yes (Other)
  Sender: FDA-Public Use
  Company Number: CA-PFIZER INC-2020372601

PATIENT
  Age: 62 Year
  Sex: Female

DRUGS (3)
  1. IBRANCE [Suspect]
     Active Substance: PALBOCICLIB
     Dosage: 125 MG, CYCLIC (DAILY) DURING 21 DAYS OUT OF 28 DAYS
     Route: 048
     Dates: start: 20200921, end: 202011
  2. IBRANCE [Suspect]
     Active Substance: PALBOCICLIB
     Dosage: 100 MG DURING 21 DAYS OUT OF 28 DAYS
     Dates: start: 202011, end: 202109
  3. FASLODEX [Suspect]
     Active Substance: FULVESTRANT
     Dosage: 500MG Q 4 WEEKS
     Route: 030

REACTIONS (6)
  - Neutropenia [Unknown]
  - Back pain [Recovered/Resolved]
  - Illness [Recovered/Resolved]
  - Nausea [Recovered/Resolved]
  - Mood swings [Unknown]
  - Neoplasm progression [Unknown]

NARRATIVE: CASE EVENT DATE: 20200101
